FAERS Safety Report 9377337 (Version 3)
Quarter: 2013Q3

REPORT INFORMATION
  Report Type: Report from Study
  Country: US (occurrence: US)
  Receive Date: 20130701
  Receipt Date: 20130816
  Transmission Date: 20140515
  Serious: Yes (Death, Hospitalization, Other)
  Sender: FDA-Public Use
  Company Number: PHEH2013US013968

PATIENT
  Age: 54 Year
  Sex: Female
  Weight: 59 kg

DRUGS (2)
  1. EXJADE [Suspect]
     Indication: IRON OVERLOAD
     Dosage: 500 MG, BID
     Route: 048
  2. PHENERGAN [Concomitant]
     Dosage: UNK UKN, UNK

REACTIONS (17)
  - Death [Fatal]
  - Catatonia [Unknown]
  - Cardiac failure acute [Unknown]
  - Pulmonary embolism [Unknown]
  - Myocardial infarction [Unknown]
  - Sepsis [Unknown]
  - Respiratory alkalosis [Unknown]
  - Depression [Unknown]
  - Asthenia [Unknown]
  - Pain [Unknown]
  - Chest pain [Unknown]
  - Malaise [Unknown]
  - Loss of consciousness [Unknown]
  - Pulseless electrical activity [Unknown]
  - Fatigue [Unknown]
  - Pyrexia [Unknown]
  - Anxiety disorder [Unknown]
